FAERS Safety Report 7731995-6 (Version None)
Quarter: 2011Q3

REPORT INFORMATION
  Report Type: 
  Country: None (occurrence: None)
  Receive Date: 20110906
  Receipt Date: 20110721
  Transmission Date: 20111222
  Serious: No
  Sender: FDA-Public Use
  Company Number: US-AMGEN-USASP2011037394

PATIENT
  Age: 74 Year
  Sex: Female

DRUGS (15)
  1. VITAMIN D [Concomitant]
  2. VITAMIN E                          /00110501/ [Concomitant]
  3. PROLIA [Suspect]
     Indication: OSTEOPOROSIS POSTMENOPAUSAL
     Dosage: 60 MG, Q6MO
     Dates: start: 20110201
  4. BENICAR [Concomitant]
     Dosage: 1 MG, QD
  5. ASPIRIN [Concomitant]
     Dosage: 1 MG, QD
  6. BEE POLLEN [Concomitant]
  7. SIMVASTATIN [Concomitant]
     Dosage: 1 MG, QD
  8. CINNAMON                           /01647501/ [Concomitant]
  9. GARLIC                             /01570501/ [Concomitant]
  10. GLUCOSAMINE CHONDROITIN [Concomitant]
  11. DILTIAZEM [Concomitant]
     Dosage: 2 MG, QD
  12. FUROSEMIDE [Concomitant]
     Dosage: 1 MG, QD
  13. MULTIVITAMIN                       /00097801/ [Concomitant]
     Dosage: 1 UNK, QD
  14. FISH OIL [Concomitant]
     Dosage: UNK
  15. OMEPRAZOLE MAGNESIUM [Concomitant]

REACTIONS (10)
  - CHILLS [None]
  - MUSCULAR WEAKNESS [None]
  - PRURITUS [None]
  - PAIN [None]
  - INFLUENZA LIKE ILLNESS [None]
  - BODY TEMPERATURE INCREASED [None]
  - PAIN IN EXTREMITY [None]
  - FEELING HOT [None]
  - HEAT RASH [None]
  - SKIN LESION [None]
